FAERS Safety Report 7978448-8 (Version None)
Quarter: 2011Q4

REPORT INFORMATION
  Report Type: 
  Country: None (occurrence: None)
  Receive Date: 20111214
  Receipt Date: 20111205
  Transmission Date: 20120403
  Serious: Yes (Other)
  Sender: FDA-Public Use
  Company Number: US-JNJFOC-20111202227

PATIENT
  Sex: Male

DRUGS (4)
  1. RISPERDAL [Suspect]
     Dosage: 0.25 MG IN THE MORNING AND 0.5 MG IN THE NIGHT
     Route: 048
     Dates: start: 20090101
  2. ADDERALL XR 10 [Concomitant]
     Indication: ATTENTION DEFICIT/HYPERACTIVITY DISORDER
     Route: 048
     Dates: end: 20101201
  3. RISPERDAL [Suspect]
     Indication: AFFECTIVE DISORDER
     Route: 048
  4. CLONIDINE [Concomitant]
     Indication: ATTENTION DEFICIT/HYPERACTIVITY DISORDER
     Route: 048
     Dates: end: 20101201

REACTIONS (7)
  - CARDIAC MURMUR [None]
  - OFF LABEL USE [None]
  - ABNORMAL BEHAVIOUR [None]
  - PRODUCT QUALITY ISSUE [None]
  - BRONCHITIS [None]
  - VENTRICULAR EXTRASYSTOLES [None]
  - WEIGHT INCREASED [None]
